FAERS Safety Report 14011105 (Version 1)
Quarter: 2017Q3

REPORT INFORMATION
  Report Type: Spontaneous
  Country: US (occurrence: US)
  Receive Date: 20170926
  Receipt Date: 20170926
  Transmission Date: 20171128
  Serious: Yes (Disabling)
  Sender: FDA-Public Use
  Company Number: None

PATIENT
  Age: 58 Year
  Sex: Female
  Weight: 72 kg

DRUGS (1)
  1. AVASTIN [Suspect]
     Active Substance: BEVACIZUMAB
     Indication: DIABETES MELLITUS
     Dosage: ?          QUANTITY:.05 INJECTION(S);?
     Route: 047
     Dates: start: 20170913

REACTIONS (2)
  - Eye infection [None]
  - Vitreous floaters [None]

NARRATIVE: CASE EVENT DATE: 20170915
